FAERS Safety Report 15390995 (Version 1)
Quarter: 2018Q3

REPORT INFORMATION
  Report Type: Spontaneous
  Country: US (occurrence: US)
  Receive Date: 20180917
  Receipt Date: 20180917
  Transmission Date: 20181010
  Serious: No
  Sender: FDA-Public Use
  Company Number: US-BAUSCH-BL-2018-024729

PATIENT
  Sex: Male

DRUGS (1)
  1. ARESTIN [Suspect]
     Active Substance: MINOCYCLINE HYDROCHLORIDE
     Indication: DENTAL CARE
     Route: 065
     Dates: start: 20180614

REACTIONS (1)
  - Swelling [Not Recovered/Not Resolved]

NARRATIVE: CASE EVENT DATE: 20180616
